FAERS Safety Report 5118517-3 (Version None)
Quarter: 2006Q3

REPORT INFORMATION
  Report Type: 
  Country: None (occurrence: None)
  Receive Date: 20060926
  Receipt Date: 20060914
  Transmission Date: 20061208
  Serious: Yes (Death)
  Sender: FDA-Public Use
  Company Number: 2006057953

PATIENT
  Age: 75 Year
  Sex: Female
  Weight: 66.6 kg

DRUGS (8)
  1. SUTENT [Suspect]
     Indication: GASTROINTESTINAL STROMAL TUMOUR
     Dosage: 50 MG (50 MG, INTERVAL: 4 WEEKS TX 2 WEEK REST), ORAL
     Route: 048
     Dates: start: 20060209, end: 20060419
  2. APO-CAL (CALCIUM CARBONATE) [Concomitant]
  3. ACEBUTOLOL [Concomitant]
  4. TRANDOLAPRIL [Concomitant]
  5. FUROSEMIDE [Concomitant]
  6. K-DUR 10 [Concomitant]
  7. RISEDRONATE SODIUM [Concomitant]
  8. OMEPRAZOLE [Concomitant]

REACTIONS (11)
  - ANOREXIA [None]
  - ASTHENIA [None]
  - CARDIO-RESPIRATORY ARREST [None]
  - DIARRHOEA [None]
  - DYSPNOEA [None]
  - ELECTROMECHANICAL DISSOCIATION [None]
  - GENERAL PHYSICAL HEALTH DETERIORATION [None]
  - HAEMATOCHEZIA [None]
  - HAEMOLYSIS [None]
  - OXYGEN SATURATION DECREASED [None]
  - PANCYTOPENIA [None]
